FAERS Safety Report 12425977 (Version 1)
Quarter: 2016Q2

REPORT INFORMATION
  Report Type: Spontaneous
  Country: JP (occurrence: JP)
  Receive Date: 20160601
  Receipt Date: 20160601
  Transmission Date: 20160815
  Serious: Yes (Hospitalization, Other)
  Sender: FDA-Public Use
  Company Number: JP-AMGEN-JPNSP2016039459

PATIENT
  Sex: Female
  Weight: 89 kg

DRUGS (8)
  1. FOLIAMIN [Concomitant]
     Active Substance: FOLIC ACID
     Dosage: UNK
  2. MOHRUS [Concomitant]
     Active Substance: KETOPROFEN
     Dosage: UNK, TAPE
     Route: 062
  3. MOHRUS [Concomitant]
     Active Substance: KETOPROFEN
     Dosage: UNK, PAP
  4. ENBREL [Suspect]
     Active Substance: ETANERCEPT
     Indication: RHEUMATOID ARTHRITIS
     Dosage: 50 MG, WEEKLY
     Route: 058
     Dates: start: 20130113, end: 20130120
  5. MOHRUS [Concomitant]
     Active Substance: KETOPROFEN
     Dosage: UNK, PAP
     Route: 062
  6. RHEUMATREX [Suspect]
     Active Substance: METHOTREXATE SODIUM
     Indication: RHEUMATOID ARTHRITIS
     Dosage: UNK
     Route: 048
     Dates: end: 20150121
  7. ENBREL [Suspect]
     Active Substance: ETANERCEPT
     Dosage: 50 MG, WEEKLY
     Route: 058
     Dates: start: 20140813, end: 20150120
  8. MOHRUS [Concomitant]
     Active Substance: KETOPROFEN
     Dosage: UNK, TAPE

REACTIONS (3)
  - Sepsis [Not Recovered/Not Resolved]
  - Cardiomyopathy [Unknown]
  - Brain neoplasm [Unknown]

NARRATIVE: CASE EVENT DATE: 20150121
